FAERS Safety Report 6945359-6 (Version None)
Quarter: 2010Q3

REPORT INFORMATION
  Report Type: 
  Country: None (occurrence: None)
  Receive Date: 20100827
  Receipt Date: 20100817
  Transmission Date: 20110219
  Serious: Yes (Death, Hospitalization)
  Sender: FDA-Public Use
  Company Number: US-ROCHE-699441

PATIENT
  Sex: Female
  Weight: 55.8 kg

DRUGS (12)
  1. CAPECITABINE [Suspect]
     Indication: BREAST CANCER
     Dosage: DOSE: 2 TABLETS, TWICE DAILY
     Route: 048
     Dates: start: 20091120, end: 20100408
  2. RITUXAN [Concomitant]
     Dates: start: 20050101
  3. ABRAXANE [Concomitant]
     Dates: start: 20080701
  4. ABRAXANE [Concomitant]
     Dates: start: 20081201
  5. HERCEPTIN [Concomitant]
     Dates: start: 20080701
  6. HERCEPTIN [Concomitant]
     Dates: start: 20081201
  7. HERCEPTIN [Concomitant]
     Dates: start: 20090901
  8. AVASTIN [Concomitant]
     Dates: start: 20081201
  9. NAVELBINE [Concomitant]
  10. GEMZAR [Concomitant]
     Dates: start: 20090901
  11. TYKERB [Concomitant]
     Dates: start: 20091101
  12. TREANDA [Concomitant]

REACTIONS (3)
  - DEATH [None]
  - DYSPNOEA [None]
  - EFFUSION [None]
